FAERS Safety Report 10977763 (Version 1)
Quarter: 2015Q2

REPORT INFORMATION
  Report Type: Spontaneous
  Country: US (occurrence: US)
  Receive Date: 20150402
  Receipt Date: 20150402
  Transmission Date: 20150821
  Serious: Yes (Hospitalization, Other)
  Sender: FDA-Public Use
  Company Number: US-GLAXOSMITHKLINE-US2015041129

PATIENT
  Age: 71 Year
  Sex: Male

DRUGS (3)
  1. JALYN [Suspect]
     Active Substance: DUTASTERIDE\TAMSULOSIN HYDROCHLORIDE
     Indication: PROSTATIC DISORDER
     Dosage: UNK, 1D
     Route: 048
     Dates: start: 2012, end: 2014
  2. COUMADIN [Concomitant]
     Active Substance: WARFARIN SODIUM
  3. PROTAMINE [Suspect]
     Active Substance: PROTAMINE
     Indication: PRODUCT USED FOR UNKNOWN INDICATION
     Dosage: UNK
     Dates: start: 20141211

REACTIONS (7)
  - White blood cell count increased [Recovering/Resolving]
  - Aortic calcification [Recovering/Resolving]
  - Pneumonia [Recovered/Resolved]
  - Cardiac aneurysm [Recovering/Resolving]
  - Hypersensitivity [Unknown]
  - Swelling [Unknown]
  - Cardiac operation [Recovering/Resolving]

NARRATIVE: CASE EVENT DATE: 201411
